FAERS Safety Report 12906725 (Version 1)
Quarter: 2016Q4

REPORT INFORMATION
  Report Type: Spontaneous
  Country: DK (occurrence: DK)
  Receive Date: 20161103
  Receipt Date: 20161103
  Transmission Date: 20170207
  Serious: Yes (Hospitalization, Other)
  Sender: FDA-Public Use
  Company Number: DK-PFIZER INC-2015397317

PATIENT
  Age: 73 Year
  Sex: Male

DRUGS (2)
  1. CYTARABINE. [Suspect]
     Active Substance: CYTARABINE
     Indication: ACUTE MYELOID LEUKAEMIA
     Dosage: 20 MG, 2X/DAY FOR 10 DAYS. 2 SERIES IN THE PERIOD: 30AUG2013-14NOV2013
     Route: 042
     Dates: start: 20130830, end: 20131114
  2. PREDNISOLONE. [Concomitant]
     Active Substance: PREDNISOLONE
     Indication: PULMONARY SARCOIDOSIS

REACTIONS (11)
  - Asthenia [Not Recovered/Not Resolved]
  - Blood urine present [Unknown]
  - Anaemia [Not Recovered/Not Resolved]
  - Urinary retention [Unknown]
  - Urinary tract infection [Unknown]
  - Blood disorder [Unknown]
  - Catheter site related reaction [Unknown]
  - Immunosuppression [Not Recovered/Not Resolved]
  - Pyrexia [Unknown]
  - Infection [Unknown]
  - Lung infection [Not Recovered/Not Resolved]

NARRATIVE: CASE EVENT DATE: 2013
